FAERS Safety Report 25163993 (Version 1)
Quarter: 2025Q2

REPORT INFORMATION
  Report Type: Spontaneous
  Country: GB (occurrence: GB)
  Receive Date: 20250405
  Receipt Date: 20250405
  Transmission Date: 20250716
  Serious: Yes (Hospitalization, Other)
  Sender: Unknown Manufacturer
  Company Number: None

PATIENT
  Age: 56 Year
  Sex: Female
  Weight: 71 kg

DRUGS (7)
  1. CLOBAZAM [Suspect]
     Active Substance: CLOBAZAM
     Indication: Seizure
     Dates: start: 20241205
  2. PHENYTOIN [Suspect]
     Active Substance: PHENYTOIN
     Indication: Prophylaxis
     Route: 042
     Dates: start: 20250106, end: 20250106
  3. DEXAMETHASONE [Concomitant]
     Active Substance: DEXAMETHASONE
     Indication: Product used for unknown indication
     Route: 042
  4. ONDANSETRON [Concomitant]
     Active Substance: ONDANSETRON
     Indication: Product used for unknown indication
  5. DEXMEDETOMIDINE [Concomitant]
     Active Substance: DEXMEDETOMIDINE
     Indication: Product used for unknown indication
  6. REMIFENTANIL [Concomitant]
     Active Substance: REMIFENTANIL
     Indication: Product used for unknown indication
  7. LEVETIRACETAM [Concomitant]
     Active Substance: LEVETIRACETAM
     Indication: Seizure
     Dates: start: 20241205

REACTIONS (10)
  - Toxicity to various agents [Recovered/Resolved]
  - Vertigo [Recovering/Resolving]
  - Coordination abnormal [Unknown]
  - Drug interaction [Unknown]
  - Hyperglycaemia [Unknown]
  - Depressed level of consciousness [Recovered/Resolved]
  - Nausea [Unknown]
  - Confusional state [Recovered/Resolved]
  - Ataxia [Recovered/Resolved]
  - Dysarthria [Recovered/Resolved]

NARRATIVE: CASE EVENT DATE: 20250106
